FAERS Safety Report 9530213 (Version 1)
Quarter: 2013Q3

REPORT INFORMATION
  Report Type: Spontaneous
  Country: GB (occurrence: GB)
  Receive Date: 20130917
  Receipt Date: 20130917
  Transmission Date: 20140515
  Serious: Yes (Hospitalization, Other)
  Sender: FDA-Public Use
  Company Number: GB-TEVA-431360ISR

PATIENT
  Sex: Female

DRUGS (1)
  1. CIPROFLOXACIN [Suspect]
     Indication: WOUND INFECTION PSEUDOMONAS
     Route: 048

REACTIONS (3)
  - Treatment failure [Unknown]
  - Skin ulcer [Unknown]
  - Wound infection [Unknown]
